FAERS Safety Report 8579382-5 (Version None)
Quarter: 2012Q3

REPORT INFORMATION
  Report Type: 
  Country: None (occurrence: None)
  Receive Date: 20120808
  Receipt Date: 20120802
  Transmission Date: 20120928
  Serious: Yes (Other)
  Sender: FDA-Public Use
  Company Number: US-PFIZER INC-2012073649

PATIENT
  Age: 86 Year
  Sex: Male

DRUGS (1)
  1. LATANOPROST [Suspect]
     Dosage: 1GTT OU QHS

REACTIONS (1)
  - HYPOACUSIS [None]
